FAERS Safety Report 24272448 (Version 1)
Quarter: 2024Q3

REPORT INFORMATION
  Report Type: Spontaneous
  Country: US (occurrence: US)
  Receive Date: 20240902
  Receipt Date: 20240902
  Transmission Date: 20241017
  Serious: Yes (Death, Hospitalization)
  Sender: BRISTOL MYERS SQUIBB
  Company Number: US-BRISTOL-MYERS SQUIBB COMPANY-2024-138642

PATIENT
  Age: 58 Year
  Sex: Male

DRUGS (1)
  1. POMALYST [Suspect]
     Active Substance: POMALIDOMIDE
     Indication: Plasma cell myeloma recurrent
     Dosage: REQUENCY: 1 TIME A DAY FOR 21 DAYS ON AND 7 DAYS OFF.
     Route: 048
     Dates: start: 202406

REACTIONS (1)
  - Nosocomial infection [Fatal]
